FAERS Safety Report 25637878 (Version 2)
Quarter: 2025Q4

REPORT INFORMATION
  Report Type: Other
  Country: GB (occurrence: GB)
  Receive Date: 20250804
  Receipt Date: 20251018
  Transmission Date: 20260118
  Serious: Yes (Other)
  Sender: GLENMARK
  Company Number: None

PATIENT
  Age: 39 Year
  Sex: Female
  Weight: 59 kg

DRUGS (4)
  1. TELMISARTAN [Suspect]
     Active Substance: TELMISARTAN
     Indication: Hypertension
     Dosage: 40 MILLIGRAM, OD (40 MG ONCE A DAY MIDDAY)
     Route: 065
     Dates: start: 20250717
  2. TELMISARTAN [Suspect]
     Active Substance: TELMISARTAN
     Dosage: 20 MILLIGRAM
     Route: 065
     Dates: end: 20250722
  3. AMLODIPINE [Concomitant]
     Active Substance: AMLODIPINE BESYLATE
     Indication: Hypertension
     Dosage: UNK
     Route: 065
  4. INDAPAMIDE [Concomitant]
     Active Substance: INDAPAMIDE
     Indication: Hypertension
     Dosage: UNK
     Route: 065

REACTIONS (7)
  - Reynold^s syndrome [Recovering/Resolving]
  - Peripheral coldness [Not Recovered/Not Resolved]
  - Sensory disturbance [Unknown]
  - Stress [Unknown]
  - Gait disturbance [Unknown]
  - Discomfort [Unknown]
  - Paraesthesia [Unknown]
